FAERS Safety Report 23706010 (Version 1)
Quarter: 2024Q2

REPORT INFORMATION
  Report Type: Spontaneous
  Country: US (occurrence: None)
  Receive Date: 20240403
  Receipt Date: 20240403
  Transmission Date: 20240716
  Serious: Yes (Life-Threatening)
  Sender: FDA-Public Use
  Company Number: None

PATIENT
  Sex: Female

DRUGS (11)
  1. CUVITRU [Suspect]
     Active Substance: HUMAN IMMUNOGLOBULIN G
     Indication: Immunodeficiency common variable
     Dosage: FREQ: INFUSE 20 GRAMS (100 ML) SUBCUTANEOUSLY EVERY 2 WEEKS
     Route: 058
     Dates: start: 20210305
  2. ATORVASTATIN [Concomitant]
  3. BIOTIN [Concomitant]
  4. CYMBALTA [Concomitant]
     Active Substance: DULOXETINE HYDROCHLORIDE
  5. ELIQUIS [Concomitant]
  6. GABAPENTIN [Concomitant]
  7. LEVOTHYROXIN [Concomitant]
  8. MAGNESIUM [Concomitant]
  9. METOPROLOL TARTRATE [Concomitant]
     Active Substance: METOPROLOL TARTRATE
  10. MULTIVITAMIN - MINERALS [Concomitant]
  11. NEXIUM [Concomitant]

REACTIONS (4)
  - Urinary tract infection [None]
  - Urosepsis [None]
  - Limb operation [None]
  - Intentional dose omission [None]
